FAERS Safety Report 20826890 (Version 3)
Quarter: 2022Q4

REPORT INFORMATION
  Report Type: Report from Study
  Country: CA (occurrence: CA)
  Receive Date: 20220513
  Receipt Date: 20221215
  Transmission Date: 20230113
  Serious: Yes (Other)
  Sender: FDA-Public Use
  Company Number: CA-BRISTOL-MYERS SQUIBB COMPANY-2022-039307

PATIENT
  Age: 65 Year
  Sex: Female

DRUGS (3)
  1. ORENCIA [Suspect]
     Active Substance: ABATACEPT
     Indication: Rheumatoid arthritis
     Dosage: CYCLICAL
     Route: 042
  2. COVID-19 VACCINE [Concomitant]
     Indication: COVID-19 immunisation
  3. METHOTREXATE [Concomitant]
     Active Substance: METHOTREXATE
     Indication: Product used for unknown indication

REACTIONS (3)
  - Blood glucose abnormal [Recovered/Resolved]
  - Arrhythmia [Recovered/Resolved]
  - Rheumatoid arthritis [Recovered/Resolved]
